FAERS Safety Report 9315415 (Version 1)
Quarter: 2013Q2

REPORT INFORMATION
  Report Type: Spontaneous
  Country: DE (occurrence: DE)
  Receive Date: 20130529
  Receipt Date: 20130529
  Transmission Date: 20140414
  Serious: Yes (Hospitalization)
  Sender: FDA-Public Use
  Company Number: DE-ABBOTT-13X-062-1077114-00

PATIENT
  Age: 43 Year
  Sex: Female
  Weight: 53 kg

DRUGS (2)
  1. KLACID [Suspect]
     Indication: RESPIRATORY TRACT INFECTION
     Dates: start: 20130324, end: 20130327
  2. KLACID [Suspect]
     Indication: TONSILLITIS

REACTIONS (2)
  - VIth nerve disorder [Recovered/Resolved]
  - Paresis [Recovered/Resolved]
